FAERS Safety Report 14295440 (Version 4)
Quarter: 2020Q3

REPORT INFORMATION
  Report Type: Spontaneous
  Country: US (occurrence: US)
  Receive Date: 20171218
  Receipt Date: 20200716
  Transmission Date: 20201102
  Serious: Yes (Hospitalization)
  Sender: FDA-Public Use
  Company Number: US-PFIZER INC-2017536902

PATIENT
  Age: 57 Year
  Sex: Female
  Weight: 72.57 kg

DRUGS (7)
  1. LYRICA [Suspect]
     Active Substance: PREGABALIN
     Indication: MUSCULAR DYSTROPHY
     Dosage: 75 MG, 2X/DAY
     Route: 048
     Dates: start: 2013
  2. MELOXICAM. [Concomitant]
     Active Substance: MELOXICAM
     Indication: ARTHRALGIA
     Dosage: 1 DF, AS NEEDED
     Route: 048
  3. LISINOPRIL HCTZ [Concomitant]
     Active Substance: HYDROCHLOROTHIAZIDE\LISINOPRIL
     Indication: HYPERTENSION
     Dosage: [HYDROCHLOROTHIAZIDE 25MG]/[LISINOPRIL 20MG] TABLET ONCE A DAY
     Route: 048
  4. DICLOFENAC SODIUM. [Concomitant]
     Active Substance: DICLOFENAC SODIUM
     Indication: BREAST PAIN
     Dosage: 25 MG, AS NEEDED
     Route: 048
  5. AMITRIPTYLINE HCL [Concomitant]
     Active Substance: AMITRIPTYLINE
     Indication: SLEEP DISORDER
     Dosage: 75 MG, 1X/DAY
     Route: 048
     Dates: start: 2013
  6. LYRICA [Suspect]
     Active Substance: PREGABALIN
     Indication: ASTHENIA
  7. LYRICA [Suspect]
     Active Substance: PREGABALIN
     Indication: NEUROPATHY PERIPHERAL

REACTIONS (10)
  - Condition aggravated [Recovered/Resolved]
  - Limb discomfort [Unknown]
  - Feeling abnormal [Unknown]
  - Nausea [Unknown]
  - Abdominal pain upper [Unknown]
  - Pain in extremity [Unknown]
  - Nephrolithiasis [Recovered/Resolved]
  - Heart rate increased [Unknown]
  - Product dose omission issue [Unknown]
  - Influenza [Recovering/Resolving]

NARRATIVE: CASE EVENT DATE: 201608
